FAERS Safety Report 5021144-X (Version None)
Quarter: 2006Q2

REPORT INFORMATION
  Report Type: 
  Country: None (occurrence: None)
  Receive Date: 20060607
  Receipt Date: 20060607
  Transmission Date: 20061013
  Serious: Yes (Hospitalization)
  Sender: FDA-Public Use
  Company Number: None

PATIENT
  Age: 82 Year
  Sex: Male
  Weight: 92.7 kg

DRUGS (10)
  1. SIMVASTATIN [Suspect]
     Indication: BLOOD CHOLESTEROL INCREASED
     Dosage: 40MG  QD PO
     Route: 048
     Dates: start: 20050809
  2. PAROXETINE HCL [Concomitant]
  3. SYNTHROID [Concomitant]
  4. FUROSEMIDE [Concomitant]
  5. HYDROCHLOROTHIAZIDE [Concomitant]
  6. GLIPIZIDE [Concomitant]
  7. LISINOPRIL [Concomitant]
  8. MIRTAZAPINE [Concomitant]
  9. TEMAZEPAM [Concomitant]
  10. TRAZODONE HCL [Concomitant]

REACTIONS (2)
  - ASTHENIA [None]
  - BLOOD CREATINE PHOSPHOKINASE INCREASED [None]
